FAERS Safety Report 24402936 (Version 1)
Quarter: 2024Q4

REPORT INFORMATION
  Report Type: Spontaneous
  Country: US (occurrence: US)
  Receive Date: 20241007
  Receipt Date: 20241007
  Transmission Date: 20250115
  Serious: No
  Sender: APOTEX
  Company Number: US-APOTEX-2023AP017838

PATIENT
  Age: 54 Year
  Sex: Female

DRUGS (1)
  1. TAMOXIFEN [Suspect]
     Active Substance: TAMOXIFEN
     Indication: Lobular breast carcinoma in situ
     Dosage: 20 MILLIGRAM, QD
     Route: 065

REACTIONS (1)
  - Maculopathy [Unknown]
